FAERS Safety Report 15621166 (Version 1)
Quarter: 2018Q4

REPORT INFORMATION
  Report Type: Report from Study
  Country: GB (occurrence: GB)
  Receive Date: 20181115
  Receipt Date: 20181115
  Transmission Date: 20190205
  Serious: Yes (Hospitalization, Other)
  Sender: FDA-Public Use
  Company Number: PHHY2018GB154655

PATIENT
  Sex: Male

DRUGS (1)
  1. COSENTYX [Suspect]
     Active Substance: SECUKINUMAB
     Indication: ANKYLOSING SPONDYLITIS
     Dosage: 150 MG, QMO
     Route: 058
     Dates: start: 20180424

REACTIONS (5)
  - Decreased immune responsiveness [Unknown]
  - Ankylosing spondylitis [Unknown]
  - Skin swelling [Unknown]
  - Dizziness [Unknown]
  - Animal bite [Unknown]
